FAERS Safety Report 7744564-9 (Version None)
Quarter: 2011Q3

REPORT INFORMATION
  Report Type: 
  Country: None (occurrence: None)
  Receive Date: 20110912
  Receipt Date: 20110908
  Transmission Date: 20111222
  Serious: Yes (Other)
  Sender: FDA-Public Use
  Company Number: CN-PFIZER INC-2011211679

PATIENT

DRUGS (2)
  1. LIPITOR [Suspect]
     Dosage: 10 MG, UNK
     Dates: start: 20090401, end: 20100801
  2. LIPITOR [Suspect]
     Dosage: 20 MG, UNK
     Dates: start: 20100801

REACTIONS (1)
  - ARTERIOSCLEROSIS [None]
